FAERS Safety Report 10656972 (Version 1)
Quarter: 2014Q4

REPORT INFORMATION
  Report Type: Spontaneous
  Country: TW (occurrence: TW)
  Receive Date: 20141217
  Receipt Date: 20141217
  Transmission Date: 20150529
  Serious: Yes (Hospitalization)
  Sender: FDA-Public Use
  Company Number: PHHY2014TW163165

PATIENT
  Age: 81 Year
  Sex: Female
  Weight: 61.2 kg

DRUGS (3)
  1. SENOKOT                            /00936101/ [Concomitant]
     Indication: CONSTIPATION
     Dosage: 7.5 MG, BID
     Route: 048
     Dates: start: 20141208
  2. MOSAPRIDE [Concomitant]
     Active Substance: MOSAPRIDE
     Indication: CONSTIPATION
     Dosage: 5 MG, TID
     Route: 048
     Dates: start: 20141208
  3. ACLASTA [Suspect]
     Active Substance: ZOLEDRONIC ACID
     Indication: OSTEOPOROSIS
     Dosage: 5 MG, UNK
     Route: 042
     Dates: start: 20141208

REACTIONS (4)
  - Urinary tract infection [Recovering/Resolving]
  - Somnolence [Recovering/Resolving]
  - Pyrexia [Recovered/Resolved]
  - Chills [Recovering/Resolving]

NARRATIVE: CASE EVENT DATE: 20141209
